FAERS Safety Report 23613746 (Version 1)
Quarter: 2024Q1

REPORT INFORMATION
  Report Type: Spontaneous
  Country: FR (occurrence: FR)
  Receive Date: 20240309
  Receipt Date: 20240309
  Transmission Date: 20240410
  Serious: Yes (Other)
  Sender: FDA-Public Use
  Company Number: FR-Ascend Therapeutics US, LLC-2154208

PATIENT
  Age: 38 Year
  Weight: 72 kg

DRUGS (4)
  1. ESTROGEL [Suspect]
     Active Substance: ESTRADIOL
     Route: 003
     Dates: start: 20220715, end: 20220926
  2. ESTRADIOL [Suspect]
     Active Substance: ESTRADIOL
     Route: 003
     Dates: start: 20220715, end: 20220926
  3. ENANTONE LP [Suspect]
     Active Substance: LEUPROLIDE ACETATE
     Route: 030
     Dates: start: 20230715, end: 20230926
  4. ESTRADIOL [Suspect]
     Active Substance: ESTRADIOL
     Route: 003
     Dates: start: 20230203

REACTIONS (4)
  - Cholestasis [Recovered/Resolved]
  - Product use in unapproved indication [Unknown]
  - Product use issue [Unknown]
  - Hepatic cytolysis [Recovered/Resolved]

NARRATIVE: CASE EVENT DATE: 20220715
